FAERS Safety Report 7645891-6 (Version None)
Quarter: 2011Q3

REPORT INFORMATION
  Report Type: 
  Country: None (occurrence: None)
  Receive Date: 20110729
  Receipt Date: 20110721
  Transmission Date: 20111222
  Serious: Yes (Other)
  Sender: FDA-Public Use
  Company Number: US-BAYER-2011-066311

PATIENT
  Age: 30 Year
  Sex: Female
  Weight: 95.692 kg

DRUGS (5)
  1. PHENERGAN HCL [Concomitant]
  2. VICODIN [Concomitant]
     Indication: PAIN
  3. DROSPIRENONE AND ETHINYL ESTRADIOL [Suspect]
     Indication: CONTRACEPTION
     Dosage: UNK
     Dates: start: 20090201, end: 20100201
  4. FLUOXETINE [Concomitant]
     Indication: DEPRESSION
     Dosage: 40 MG, QD
     Route: 048
     Dates: start: 20090101, end: 20100101
  5. HYDROCODONE BITARTRATE AND ACETAMINOPHEN [Concomitant]
     Dosage: UNK
     Route: 048
     Dates: start: 20080101, end: 20110101

REACTIONS (4)
  - CHOLECYSTITIS CHRONIC [None]
  - ABORTION SPONTANEOUS [None]
  - GALLBLADDER DISORDER [None]
  - CHOLELITHIASIS [None]
